FAERS Safety Report 24882816 (Version 1)
Quarter: 2025Q1

REPORT INFORMATION
  Report Type: Spontaneous
  Country: US (occurrence: None)
  Receive Date: 20250123
  Receipt Date: 20250123
  Transmission Date: 20250409
  Serious: No
  Sender: FDA-CTU
  Company Number: None

PATIENT
  Age: 71 Year
  Sex: Male

DRUGS (1)
  1. PIRFENIDONE [Suspect]
     Active Substance: PIRFENIDONE
     Indication: Bronchiolitis
     Dosage: FREQUENCY : 3 TIMES A DAY;?
     Route: 048
     Dates: start: 20241210, end: 20250115

REACTIONS (6)
  - Pulmonary function test decreased [None]
  - Decreased appetite [None]
  - Nausea [None]
  - Vomiting [None]
  - Weight decreased [None]
  - Therapy change [None]

NARRATIVE: CASE EVENT DATE: 20250115
